FAERS Safety Report 6316201-1 (Version None)
Quarter: 2009Q3

REPORT INFORMATION
  Report Type: 
  Country: None (occurrence: None)
  Receive Date: 20090820
  Receipt Date: 20090812
  Transmission Date: 20100115
  Serious: Yes (Other)
  Sender: FDA-Public Use
  Company Number: GB-B.I. PHARMACEUTICALS,INC./RIDGEFIELD-2009-DE-05390GD

PATIENT
  Age: 13 Year
  Sex: Male
  Weight: 40 kg

DRUGS (5)
  1. CLONIDINE [Suspect]
     Indication: EPIDURAL ANAESTHESIA
     Dosage: INITIAL BOLUS OF 10 ML WITH 75 MCG, FOLLOWED BY AN INFUSION OF 1 MG/ML AT A RATE OF 0.3 MG/KG/H (12
     Route: 008
  2. LEVOBUPIVACAINE [Suspect]
     Indication: EPIDURAL ANAESTHESIA
     Dosage: BOLUS DOSE OF 10 ML OF 0.25%, FOLLOWED BY AN INFUSION OF 0.125% AT A RATE OF 12 ML/H
     Route: 008
  3. ACETAMINOPHEN [Concomitant]
     Route: 042
  4. CEFUROXIME [Concomitant]
  5. DEXAMETHASONE [Concomitant]

REACTIONS (2)
  - ANURIA [None]
  - PRIAPISM [None]
